FAERS Safety Report 9742975 (Version 1)
Quarter: 2013Q4

REPORT INFORMATION
  Report Type: Spontaneous
  Country: US (occurrence: US)
  Receive Date: 20131210
  Receipt Date: 20131210
  Transmission Date: 20140711
  Serious: No
  Sender: FDA-Public Use
  Company Number: US-TEVA-372803USA

PATIENT
  Sex: Male

DRUGS (1)
  1. BUDESONIDE [Suspect]
     Dosage: 0.5 MG/2 ML INHALATION SUSPENSION

REACTIONS (2)
  - Asthma [Unknown]
  - Vomiting [Unknown]
